FAERS Safety Report 23968429 (Version 1)
Quarter: 2024Q2

REPORT INFORMATION
  Report Type: Spontaneous
  Country: US (occurrence: None)
  Receive Date: 20240612
  Receipt Date: 20240612
  Transmission Date: 20240715
  Serious: Yes (Hospitalization)
  Sender: FDA-Public Use
  Company Number: None

PATIENT
  Age: 62 Year
  Sex: Female

DRUGS (9)
  1. STELARA [Suspect]
     Active Substance: USTEKINUMAB
     Indication: Crohn^s disease
     Dosage: 90MG EVERY 4 WEEKS UNDER THE SKIN
     Route: 058
     Dates: start: 202401
  2. PROBIOTICS NOS [Concomitant]
     Active Substance: PROBIOTICS NOS
  3. GABAPENTIN [Concomitant]
     Active Substance: GABAPENTIN
  4. CALCIUM MAGNESIUM ZINC + D3 [Concomitant]
  5. ESTRADIOL [Concomitant]
     Active Substance: ESTRADIOL
  6. BUDESONIDE [Concomitant]
     Active Substance: BUDESONIDE
  7. APRISO [Concomitant]
     Active Substance: MESALAMINE
  8. VITAMIN B COMPLEX [Concomitant]
     Active Substance: CYANOCOBALAMIN\DEXPANTHENOL\NIACINAMIDE\PYRIDOXINE HYDROCHLORIDE\RIBOFLAVIN 5^-PHOSPHATE SODIUM\THIA
  9. ALENDRONATE SODIUM [Concomitant]
     Active Substance: ALENDRONATE SODIUM

REACTIONS (2)
  - Spinal fracture [None]
  - Vitamin B12 decreased [None]

NARRATIVE: CASE EVENT DATE: 20240528
